FAERS Safety Report 7176583-8 (Version None)
Quarter: 2010Q4

REPORT INFORMATION
  Report Type: 
  Country: None (occurrence: None)
  Receive Date: 20101220
  Receipt Date: 20101214
  Transmission Date: 20110411
  Serious: Yes (Other)
  Sender: FDA-Public Use
  Company Number: DE-PFIZER INC-2010172260

PATIENT
  Age: 53 Year
  Sex: Female

DRUGS (2)
  1. ZELDOX [Suspect]
     Dosage: 20 MG IN THE MORNING / 40 MG IN THE EVENING
  2. ZELDOX [Suspect]
     Dosage: 40 MG DAILY

REACTIONS (3)
  - EXTRAPYRAMIDAL DISORDER [None]
  - LACRIMATION INCREASED [None]
  - SALIVARY HYPERSECRETION [None]
